FAERS Safety Report 21050641 (Version 1)
Quarter: 2022Q3

REPORT INFORMATION
  Report Type: Spontaneous
  Country: IT (occurrence: IT)
  Receive Date: 20220707
  Receipt Date: 20220707
  Transmission Date: 20221026
  Serious: Yes (Life-Threatening)
  Sender: FDA-Public Use
  Company Number: IT-SUN PHARMACEUTICAL INDUSTRIES LTD-2022RR-343618

PATIENT
  Age: 51 Year
  Sex: Female
  Weight: 65 kg

DRUGS (1)
  1. OXALIPLATIN [Suspect]
     Active Substance: OXALIPLATIN
     Indication: Rectosigmoid cancer
     Dosage: 187.9 MILLIGRAM, IN TOTAL
     Route: 042
     Dates: start: 20220609, end: 20220609

REACTIONS (2)
  - Epiglottic oedema [Recovered/Resolved with Sequelae]
  - Bronchospasm [Recovered/Resolved with Sequelae]

NARRATIVE: CASE EVENT DATE: 20220609
